FAERS Safety Report 7274569-6 (Version None)
Quarter: 2011Q1

REPORT INFORMATION
  Report Type: 
  Country: None (occurrence: None)
  Receive Date: 20110125
  Receipt Date: 20110113
  Transmission Date: 20110831
  Serious: Yes (Hospitalization)
  Sender: FDA-Public Use
  Company Number: 0843085

PATIENT
  Age: 89 Year
  Sex: Male
  Weight: 84.369 kg

DRUGS (7)
  1. PRINIVIL [Suspect]
     Dosage: 10 MG/DAILY/PO
     Route: 048
     Dates: start: 20090324
  2. TAB BLINDED THERAPY UNK [Suspect]
     Indication: ACUTE CORONARY SYNDROME
     Dosage: PO
     Route: 048
     Dates: start: 20080328
  3. CLOPIDOGREL BISULFATE [Concomitant]
  4. ASPIRIN [Concomitant]
  5. METOPROLOL [Concomitant]
  6. ISOSORBIDE DINITRATE [Concomitant]
  7. OMEGA-3 MARINE TRIGLYCERIDES [Concomitant]

REACTIONS (5)
  - MENTAL STATUS CHANGES [None]
  - CONFUSIONAL STATE [None]
  - AGITATION [None]
  - HALLUCINATION [None]
  - AGGRESSION [None]
